FAERS Safety Report 13081888 (Version 2)
Quarter: 2017Q1

REPORT INFORMATION
  Report Type: Spontaneous
  Country: FR (occurrence: FR)
  Receive Date: 20170103
  Receipt Date: 20170130
  Transmission Date: 20170428
  Serious: Yes (Other)
  Sender: FDA-Public Use
  Company Number: FR-TEVA-723304ROM

PATIENT
  Age: 67 Year
  Sex: Male

DRUGS (11)
  1. MODIODAL [Suspect]
     Active Substance: MODAFINIL
     Dosage: 1 DOSAGE FORMS DAILY;
     Route: 048
     Dates: start: 2016
  2. CRESTOR [Concomitant]
     Active Substance: ROSUVASTATIN CALCIUM
  3. KARDEGIC [Concomitant]
     Active Substance: ASPIRIN LYSINE
  4. ALPRAZOLAM. [Suspect]
     Active Substance: ALPRAZOLAM
     Indication: ANXIETY
     Dosage: .25 MILLIGRAM DAILY;
     Route: 048
     Dates: start: 201607, end: 201610
  5. COVERSYL [Concomitant]
     Active Substance: PERINDOPRIL
  6. ALLOPURINOL. [Concomitant]
     Active Substance: ALLOPURINOL
  7. ALPRAZOLAM. [Suspect]
     Active Substance: ALPRAZOLAM
     Dosage: .5 DOSAGE FORMS DAILY;
     Route: 048
     Dates: start: 2016, end: 2016
  8. MODIODAL [Suspect]
     Active Substance: MODAFINIL
     Indication: HYPERSOMNIA
     Route: 048
     Dates: start: 2014, end: 2016
  9. ATENOLOL. [Concomitant]
     Active Substance: ATENOLOL
  10. RHINOMAXIL [Concomitant]
     Active Substance: BECLOMETHASONE DIPROPIONATE
  11. INEXIUM [Concomitant]
     Active Substance: ESOMEPRAZOLE

REACTIONS (1)
  - Diplopia [Recovered/Resolved]

NARRATIVE: CASE EVENT DATE: 20161005
